FAERS Safety Report 6516594-6 (Version None)
Quarter: 2009Q4

REPORT INFORMATION
  Report Type: 
  Country: None (occurrence: None)
  Receive Date: 20091223
  Receipt Date: 20091222
  Transmission Date: 20100525
  Serious: Yes (Death, Hospitalization, Other)
  Sender: FDA-Public Use
  Company Number: ES-AMGEN-UK376353

PATIENT
  Sex: Male

DRUGS (11)
  1. MIMPARA [Suspect]
     Indication: PRE-EXISTING DISEASE
     Route: 065
  2. SINTROM [Concomitant]
  3. NEORAL [Concomitant]
  4. SANDIMMUNE [Concomitant]
  5. DEFLAZACORT [Concomitant]
  6. IMUREL [Concomitant]
  7. COZAAR [Concomitant]
  8. FERRO-GRADUMET [Concomitant]
  9. SEGURIL [Concomitant]
  10. COLCHICINE [Concomitant]
  11. ARANESP [Concomitant]

REACTIONS (14)
  - ANGIOSCLEROSIS [None]
  - ATRIAL FIBRILLATION [None]
  - BLOOD CREATININE INCREASED [None]
  - CALCIPHYLAXIS [None]
  - CARDIAC FAILURE CONGESTIVE [None]
  - DEPRESSION [None]
  - DIVERTICULUM INTESTINAL [None]
  - GAMMOPATHY [None]
  - GENERAL PHYSICAL HEALTH DETERIORATION [None]
  - HIATUS HERNIA [None]
  - HYPERCALCAEMIA [None]
  - INFECTION [None]
  - MALNUTRITION [None]
  - RENAL FAILURE CHRONIC [None]
